FAERS Safety Report 7084808-2 (Version None)
Quarter: 2010Q4

REPORT INFORMATION
  Report Type: 
  Country: None (occurrence: None)
  Receive Date: 20101105
  Receipt Date: 20101103
  Transmission Date: 20110411
  Serious: No
  Sender: FDA-Public Use
  Company Number: US-BIOGENIDEC-2010BI008254

PATIENT
  Age: 52 Year
  Sex: Female

DRUGS (2)
  1. TYSABRI [Suspect]
     Indication: MULTIPLE SCLEROSIS
     Route: 042
     Dates: start: 20061003, end: 20100204
  2. TYSABRI [Suspect]
     Route: 042
     Dates: start: 20100514

REACTIONS (4)
  - BLOOD COUNT ABNORMAL [None]
  - INFECTION [None]
  - JC VIRUS TEST POSITIVE [None]
  - MUSCLE SPASMS [None]
